FAERS Safety Report 24328936 (Version 4)
Quarter: 2025Q2

REPORT INFORMATION
  Report Type: Report from Study
  Country: CN (occurrence: CN)
  Receive Date: 20240917
  Receipt Date: 20250630
  Transmission Date: 20250717
  Serious: Yes (Hospitalization)
  Sender: EISAI
  Company Number: CN-Eisai-EC-2024-174276

PATIENT
  Age: 67 Year
  Sex: Male
  Weight: 53 kg

DRUGS (13)
  1. LENVATINIB [Suspect]
     Active Substance: LENVATINIB
     Indication: Hepatocellular carcinoma
     Dates: start: 20230331, end: 20230408
  2. LENVATINIB [Suspect]
     Active Substance: LENVATINIB
     Dates: start: 20230413, end: 20230419
  3. LENVATINIB [Suspect]
     Active Substance: LENVATINIB
     Dates: start: 20230420, end: 20230425
  4. LENVATINIB [Suspect]
     Active Substance: LENVATINIB
     Dates: start: 20230427, end: 20230427
  5. LENVATINIB [Suspect]
     Active Substance: LENVATINIB
     Dates: start: 20230428, end: 20230817
  6. LENVATINIB [Suspect]
     Active Substance: LENVATINIB
     Dates: start: 20231004, end: 20231120
  7. DURVALUMAB [Suspect]
     Active Substance: DURVALUMAB
     Indication: Hepatocellular carcinoma
     Dates: start: 20230331, end: 20230803
  8. TREMELIMUMAB [Suspect]
     Active Substance: TREMELIMUMAB
     Indication: Hepatocellular carcinoma
     Dates: start: 20230331, end: 20230331
  9. ENTECAVIR [Concomitant]
     Active Substance: ENTECAVIR
     Indication: Chronic hepatitis B
  10. NIFEDIPINE [Concomitant]
     Active Substance: NIFEDIPINE
     Indication: Hypertension
  11. MOSAPRIDE CITRATE [Concomitant]
     Active Substance: MOSAPRIDE CITRATE
     Indication: Hypertension
  12. ESOMEPRAZOLE [Concomitant]
     Active Substance: ESOMEPRAZOLE
     Indication: Hypertension
  13. DOMPERIDONE [Concomitant]
     Active Substance: DOMPERIDONE
     Indication: Hypertension

REACTIONS (3)
  - Upper gastrointestinal haemorrhage [Recovered/Resolved]
  - Hiccups [Recovered/Resolved]
  - Cerebral ischaemia [Recovering/Resolving]

NARRATIVE: CASE EVENT DATE: 20230512
